FAERS Safety Report 21103200 (Version 3)
Quarter: 2022Q3

REPORT INFORMATION
  Report Type: Spontaneous
  Country: US (occurrence: US)
  Receive Date: 20220720
  Receipt Date: 20220811
  Transmission Date: 20221026
  Serious: No
  Sender: FDA-Public Use
  Company Number: US-ORGANON-O2207USA001130

PATIENT
  Sex: Female
  Weight: 80.272 kg

DRUGS (1)
  1. NEXPLANON [Suspect]
     Active Substance: ETONOGESTREL
     Dosage: 1 IMPLANT, 68MG (MILLIGRAM), EVERY 3 YEARS, IN THE LEFT ARM
     Route: 059
     Dates: start: 20211210

REACTIONS (2)
  - Device breakage [Recovered/Resolved]
  - No adverse event [Unknown]
